FAERS Safety Report 10133617 (Version 1)
Quarter: 2014Q2

REPORT INFORMATION
  Report Type: Spontaneous
  Country: FR (occurrence: FR)
  Receive Date: 20140428
  Receipt Date: 20140428
  Transmission Date: 20141212
  Serious: Yes (Death)
  Sender: FDA-Public Use
  Company Number: FR-GLAXOSMITHKLINE-B0988531A

PATIENT
  Age: 72 Year
  Sex: Male

DRUGS (4)
  1. REQUIP LP [Suspect]
     Indication: PARKINSON^S DISEASE
     Route: 048
     Dates: start: 200709, end: 20140215
  2. APOMORPHINE [Suspect]
     Indication: PARKINSON^S DISEASE
     Dosage: 30000MCG THREE TIMES PER DAY
     Route: 058
     Dates: start: 201204, end: 20140317
  3. STALEVO [Suspect]
     Indication: PARKINSON^S DISEASE
     Dosage: 1UNIT THREE TIMES PER DAY
     Route: 048
     Dates: start: 200709, end: 20140317
  4. SINEMET [Suspect]
     Indication: PARKINSON^S DISEASE
     Dosage: 100MG FIVE TIMES PER DAY
     Route: 048
     Dates: start: 200709, end: 20140317

REACTIONS (4)
  - Hypersexuality [Fatal]
  - Completed suicide [Fatal]
  - Sexual abuse [Not Recovered/Not Resolved]
  - Drug interaction [Unknown]
